FAERS Safety Report 14141021 (Version 1)
Quarter: 2017Q4

REPORT INFORMATION
  Report Type: Spontaneous
  Country: US (occurrence: US)
  Receive Date: 20171027
  Receipt Date: 20171027
  Transmission Date: 20180321
  Serious: Yes (Hospitalization, Other)
  Sender: FDA-Public Use
  Company Number: None

PATIENT
  Age: 73 Year
  Sex: Female

DRUGS (1)
  1. BEVACIZUMAB. [Suspect]
     Active Substance: BEVACIZUMAB
     Indication: RETINAL NEOVASCULARISATION
     Route: 031
     Dates: start: 20171017, end: 20171017

REACTIONS (1)
  - Endophthalmitis [None]

NARRATIVE: CASE EVENT DATE: 20171017
